FAERS Safety Report 9011098 (Version 1)
Quarter: 2013Q1

REPORT INFORMATION
  Report Type: Spontaneous
  Country: US (occurrence: US)
  Receive Date: 20130109
  Receipt Date: 20130109
  Transmission Date: 20140127
  Serious: Yes (Other)
  Sender: FDA-Public Use
  Company Number: US-009507513-0909USA03274

PATIENT
  Age: 14 Year
  Sex: Female
  Weight: 58.51 kg

DRUGS (5)
  1. SINGULAIR [Suspect]
     Indication: ASTHMA
     Dosage: 10 MG, QD
     Route: 048
     Dates: start: 20081201, end: 20081216
  2. CONCERTA [Concomitant]
     Indication: ATTENTION DEFICIT/HYPERACTIVITY DISORDER
     Dosage: 36 MG, UNK
  3. MELATONIN [Concomitant]
     Dosage: 3 MG, HS
  4. ZOLOFT [Concomitant]
     Dosage: 75 MG, UNK
  5. MK-9278 [Concomitant]

REACTIONS (8)
  - Suicidal ideation [Recovered/Resolved]
  - Abnormal behaviour [Recovered/Resolved]
  - Activities of daily living impaired [Recovered/Resolved]
  - Cardiac flutter [Recovered/Resolved]
  - Crying [Recovered/Resolved]
  - Fatigue [Recovered/Resolved]
  - Feeling abnormal [Recovered/Resolved]
  - Personality change [Recovered/Resolved]
